FAERS Safety Report 7319890-8 (Version None)
Quarter: 2011Q1

REPORT INFORMATION
  Report Type: 
  Country: None (occurrence: None)
  Receive Date: 20110228
  Receipt Date: 20101116
  Transmission Date: 20110831
  Serious: No
  Sender: FDA-Public Use
  Company Number: A0892837A

PATIENT
  Age: 54 Year
  Sex: Female

DRUGS (7)
  1. LEVOTHYROXINE SODIUM [Concomitant]
  2. AMLODIPINE BESYLATE AND BENAZEPRIL HCL [Concomitant]
  3. LAMICTAL [Suspect]
     Indication: BIPOLAR DISORDER
     Dosage: 25MG PER DAY
     Route: 048
     Dates: start: 20101015, end: 20101028
  4. TYLENOL W/ CODEINE NO. 3 [Concomitant]
  5. WELLBUTRIN [Concomitant]
  6. OXYCODONE [Concomitant]
  7. LITHIUM [Concomitant]

REACTIONS (2)
  - HEADACHE [None]
  - IMPAIRED DRIVING ABILITY [None]
